FAERS Safety Report 7896481-1 (Version None)
Quarter: 2011Q4

REPORT INFORMATION
  Report Type: 
  Country: None (occurrence: None)
  Receive Date: 20111104
  Receipt Date: 20111104
  Transmission Date: 20120403
  Serious: Yes (Other)
  Sender: FDA-Public Use
  Company Number: None

PATIENT
  Sex: Female
  Weight: 70.3075 kg

DRUGS (3)
  1. ELMIRON [Suspect]
     Indication: CYSTITIS
     Dosage: 200MG TWICE DAILY BY MOUTH
     Route: 048
     Dates: start: 20110919
  2. ELMIRON [Suspect]
     Indication: CYSTITIS
     Dosage: 200MG TWICE DAILY BY MOUTH
     Route: 048
     Dates: start: 20110921
  3. ELMIRON [Suspect]
     Indication: CYSTITIS
     Dosage: 200MG TWICE DAILY BY MOUTH
     Route: 048
     Dates: start: 20110920

REACTIONS (6)
  - GASTROINTESTINAL HAEMORRHAGE [None]
  - MALAISE [None]
  - HAEMATOCHEZIA [None]
  - ABDOMINAL PAIN UPPER [None]
  - GASTROINTESTINAL PAIN [None]
  - NAUSEA [None]
